FAERS Safety Report 6666880-4 (Version None)
Quarter: 2010Q2

REPORT INFORMATION
  Report Type: 
  Country: None (occurrence: None)
  Receive Date: 20100401
  Receipt Date: 20100401
  Transmission Date: 20101027
  Serious: Yes (Death)
  Sender: FDA-Public Use
  Company Number: None

PATIENT
  Sex: Female
  Weight: 46 kg

DRUGS (8)
  1. PEMETREXED [Suspect]
     Indication: NON-SMALL CELL LUNG CANCER
     Dosage: 400MG/M2 IV Q2 WEEKS
     Route: 042
     Dates: start: 20100129, end: 20100309
  2. GEMCITABINE HCL [Suspect]
     Indication: NON-SMALL CELL LUNG CANCER
     Dosage: 1200MG/M2 Q2 WEEKS
     Dates: start: 20100129, end: 20100209
  3. AVASTIN [Suspect]
     Indication: NON-SMALL CELL LUNG CANCER
     Dosage: 10MGMKG Q2 WEEKS
     Dates: start: 20100129, end: 20100309
  4. VITAMIN B-12 [Concomitant]
  5. MSSR [Concomitant]
  6. MORPHINE SULFATE [Concomitant]
  7. CELEBREX [Concomitant]
  8. LACTULOSE [Concomitant]

REACTIONS (3)
  - MALIGNANT NEOPLASM PROGRESSION [None]
  - NON-SMALL CELL LUNG CANCER STAGE IIIB [None]
  - NON-SMALL CELL LUNG CANCER STAGE IV [None]
